FAERS Safety Report 19973749 (Version 1)
Quarter: 2021Q4

REPORT INFORMATION
  Report Type: Spontaneous
  Country: US (occurrence: US)
  Receive Date: 20211020
  Receipt Date: 20211020
  Transmission Date: 20220303
  Serious: No
  Sender: FDA-Public Use
  Company Number: US-NOVARTISTESTPH-PHEH2018US037870

PATIENT
  Age: 67 Year
  Sex: Female

DRUGS (1)
  1. CLONAZEPAM [Suspect]
     Active Substance: CLONAZEPAM
     Indication: Product used for unknown indication
     Dosage: UNK
     Route: 065

REACTIONS (8)
  - Thought blocking [Unknown]
  - Cold sweat [Unknown]
  - Crying [Unknown]
  - Balance disorder [Unknown]
  - Feeling jittery [Unknown]
  - Nausea [Unknown]
  - Disturbance in attention [Unknown]
  - Headache [Unknown]
